FAERS Safety Report 4291320-2 (Version None)
Quarter: 2004Q1

REPORT INFORMATION
  Report Type: 
  Country: None (occurrence: None)
  Receive Date: 20040211
  Receipt Date: 20031205
  Transmission Date: 20041129
  Serious: No
  Sender: FDA-Public Use
  Company Number: US-GLAXOSMITHKLINE-A0442583A

PATIENT
  Sex: Female

DRUGS (2)
  1. PAXIL [Suspect]
     Indication: PANIC ATTACK
     Dosage: 40MG UNKNOWN
     Route: 048
  2. PAXIL [Suspect]
     Indication: ANXIETY
     Route: 048
     Dates: start: 20031101

REACTIONS (5)
  - DRUG EXPOSURE DURING PREGNANCY [None]
  - EXCITABILITY [None]
  - NAUSEA [None]
  - SEXUAL DYSFUNCTION [None]
  - WEIGHT DECREASED [None]
